FAERS Safety Report 15118597 (Version 1)
Quarter: 2018Q3

REPORT INFORMATION
  Report Type: Spontaneous
  Country: IT (occurrence: IT)
  Receive Date: 20180709
  Receipt Date: 20180709
  Transmission Date: 20181010
  Serious: Yes (Other)
  Sender: FDA-Public Use
  Company Number: IT-TEVA-2018-IT-921656

PATIENT
  Age: 49 Year
  Weight: 80 kg

DRUGS (2)
  1. FLUOROURACIL. [Suspect]
     Active Substance: FLUOROURACIL
     Indication: PHARYNGEAL NEOPLASM
     Route: 041
     Dates: start: 20180420
  2. CISPLATIN. [Suspect]
     Active Substance: CISPLATIN
     Indication: PHARYNGEAL NEOPLASM
     Route: 041
     Dates: start: 20180420

REACTIONS (1)
  - Bone marrow toxicity [Unknown]

NARRATIVE: CASE EVENT DATE: 20180420
